FAERS Safety Report 4876368-9 (Version None)
Quarter: 2006Q1

REPORT INFORMATION
  Report Type: 
  Country: None (occurrence: None)
  Receive Date: 20060106
  Receipt Date: 20060103
  Transmission Date: 20060701
  Serious: Yes (Other)
  Sender: FDA-Public Use
  Company Number: NLWYE272503JAN06

PATIENT
  Age: 55 Year
  Sex: Male

DRUGS (2)
  1. EFFEXOR [Suspect]
     Indication: DEPRESSION
     Dosage: 225 MG 1X PER 1 DAY
     Dates: start: 20010101
  2. MIRTAZAPINE [Suspect]
     Dosage: 30 MG 1X PER 1 DAY
     Route: 048
     Dates: start: 20010101

REACTIONS (9)
  - DIAPHRAGM MUSCLE WEAKNESS [None]
  - DILATATION VENTRICULAR [None]
  - DYSPNOEA EXERTIONAL [None]
  - EJECTION FRACTION DECREASED [None]
  - GENERAL PHYSICAL CONDITION ABNORMAL [None]
  - HYPERTENSION [None]
  - MUSCULAR WEAKNESS [None]
  - PULMONARY FUNCTION TEST DECREASED [None]
  - TACHYCARDIA [None]
